FAERS Safety Report 7234281-6 (Version None)
Quarter: 2011Q1

REPORT INFORMATION
  Report Type: 
  Country: None (occurrence: None)
  Receive Date: 20110119
  Receipt Date: 20110106
  Transmission Date: 20110831
  Serious: Yes (Hospitalization, Other)
  Sender: FDA-Public Use
  Company Number: US-ROCHE-731089

PATIENT
  Sex: Female
  Weight: 59 kg

DRUGS (7)
  1. ALEVE [Concomitant]
     Indication: HEADACHE
  2. ACCUTANE [Suspect]
     Route: 065
     Dates: start: 19900101, end: 19920101
  3. ADVIL [Concomitant]
  4. ACCUTANE [Suspect]
     Route: 065
     Dates: start: 19971101, end: 19980508
  5. ERYTHROMYCIN [Concomitant]
     Indication: ACNE
     Dosage: ERYTHROMYCIN 333 ONE BID.
     Dates: start: 19880101
  6. ACCUTANE [Suspect]
     Indication: ACNE
     Route: 065
     Dates: start: 19880101, end: 19890101
  7. MINOCIN [Concomitant]
     Dosage: DOSE: 100-200 MG.
     Dates: start: 19880101

REACTIONS (14)
  - GASTROINTESTINAL INJURY [None]
  - CYST [None]
  - IRRITABLE BOWEL SYNDROME [None]
  - FATIGUE [None]
  - SKIN PAPILLOMA [None]
  - COLONIC POLYP [None]
  - ANAEMIA [None]
  - INFLAMMATORY BOWEL DISEASE [None]
  - RECTAL POLYP [None]
  - DEPRESSION [None]
  - SCAB [None]
  - COLITIS ULCERATIVE [None]
  - OBSESSIVE-COMPULSIVE DISORDER [None]
  - ACNE [None]
